FAERS Safety Report 10141843 (Version 1)
Quarter: 2014Q2

REPORT INFORMATION
  Report Type: Spontaneous
  Country: US (occurrence: US)
  Receive Date: 20140429
  Receipt Date: 20140429
  Transmission Date: 20141212
  Serious: Yes (Other)
  Sender: FDA-Public Use
  Company Number: US-ACTAVIS-2014-08820

PATIENT
  Age: 16 Year
  Sex: Male

DRUGS (1)
  1. TRIAMCINOLONE ACETONIDE (AMALLC) [Suspect]
     Indication: EPISTAXIS
     Dosage: 32 MG, TOTAL
     Route: 045

REACTIONS (7)
  - Blindness [Recovered/Resolved with Sequelae]
  - Retinal vascular occlusion [Unknown]
  - Choroidal infarction [Unknown]
  - Eyelid ptosis [Unknown]
  - Eye pain [Unknown]
  - Nausea [Unknown]
  - Vomiting [Unknown]
